FAERS Safety Report 9647864 (Version 1)
Quarter: 2013Q4

REPORT INFORMATION
  Report Type: Spontaneous
  Country: US (occurrence: US)
  Receive Date: 20131028
  Receipt Date: 20131028
  Transmission Date: 20140711
  Serious: No
  Sender: FDA-Public Use
  Company Number: US-PFIZER INC-2013302231

PATIENT
  Sex: Male

DRUGS (1)
  1. PRISTIQ [Suspect]
     Dosage: UNK

REACTIONS (16)
  - Crying [Unknown]
  - Anxiety [Unknown]
  - Decreased interest [Unknown]
  - Depressed mood [Unknown]
  - Headache [Unknown]
  - Apathy [Unknown]
  - Psychiatric symptom [Unknown]
  - Social avoidant behaviour [Unknown]
  - Initial insomnia [Unknown]
  - Feelings of worthlessness [Unknown]
  - Feeling guilty [Unknown]
  - Disturbance in attention [Unknown]
  - Appetite disorder [Unknown]
  - Tension [Unknown]
  - Restlessness [Unknown]
  - Negative thoughts [Unknown]
